FAERS Safety Report 23262237 (Version 2)
Quarter: 2023Q4

REPORT INFORMATION
  Report Type: Spontaneous
  Country: DE (occurrence: DE)
  Receive Date: 20231205
  Receipt Date: 20231227
  Transmission Date: 20240109
  Serious: Yes (Hospitalization)
  Sender: FDA-Public Use
  Company Number: DE-DSJP-DSE-2023-146722

PATIENT
  Age: 71 Year
  Sex: Female
  Weight: 82 kg

DRUGS (3)
  1. ENHERTU [Suspect]
     Active Substance: FAM-TRASTUZUMAB DERUXTECAN-NXKI
     Indication: Breast cancer metastatic
     Dosage: 443 MG, CYCLIC
     Route: 042
     Dates: start: 20231010
  2. DEXAMETHASONE [Concomitant]
     Active Substance: DEXAMETHASONE
     Indication: Prophylaxis of nausea and vomiting
     Dosage: 12 MG AS SHORT INFUSION
     Route: 065
     Dates: start: 20231010, end: 20231010
  3. ONDANSETRON [Concomitant]
     Active Substance: ONDANSETRON
     Indication: Prophylaxis of nausea and vomiting
     Dosage: 8 MG AS SHORT INFUSION
     Route: 065
     Dates: start: 20231010, end: 20231010

REACTIONS (3)
  - Infusion site extravasation [Recovering/Resolving]
  - Infusion site necrosis [Recovering/Resolving]
  - Device dislocation [Unknown]

NARRATIVE: CASE EVENT DATE: 20231010
